FAERS Safety Report 11322420 (Version 1)
Quarter: 2015Q3

REPORT INFORMATION
  Report Type: Spontaneous
  Country: US (occurrence: US)
  Receive Date: 20150730
  Receipt Date: 20150730
  Transmission Date: 20151125
  Serious: No
  Sender: FDA-Public Use
  Company Number: US-PFIZER INC-2015186558

PATIENT
  Age: 57 Year
  Sex: Female

DRUGS (1)
  1. LYRICA [Suspect]
     Active Substance: PREGABALIN
     Indication: URINARY TRACT INFECTION
     Dosage: 150 MG, 3X/DAY
     Route: 048

REACTIONS (3)
  - Product use issue [Unknown]
  - Malaise [Unknown]
  - Stress [Unknown]
